FAERS Safety Report 16871651 (Version 1)
Quarter: 2019Q4

REPORT INFORMATION
  Report Type: Spontaneous
  Country: PL (occurrence: PL)
  Receive Date: 20191001
  Receipt Date: 20191001
  Transmission Date: 20200122
  Serious: Yes (Death, Hospitalization)
  Sender: FDA-Public Use
  Company Number: PL-ROCHE-2417578

PATIENT
  Age: 62 Year
  Sex: Male

DRUGS (5)
  1. BENDAMUSTINE [Suspect]
     Active Substance: BENDAMUSTINE
     Indication: CHRONIC LYMPHOCYTIC LEUKAEMIA STAGE 2
     Dosage: IIND LINE CHEMOTHERAPY, 3 TREATMENT COURSES, AT THE TURN OF NOVEMBER AND DECEMBER 2016
     Route: 065
  2. RITUXIMAB. [Suspect]
     Active Substance: RITUXIMAB
     Indication: CHRONIC LYMPHOCYTIC LEUKAEMIA STAGE 2
     Dosage: IIND LINE CHEMOTHERAPY, 3 TREATMENT COURSES, AT THE TURN OF NOVEMBER AND DECEMBER 2016
     Route: 065
  3. FLUDARABINE [Suspect]
     Active Substance: FLUDARABINE PHOSPHATE
     Indication: CHRONIC LYMPHOCYTIC LEUKAEMIA STAGE 2
     Route: 065
  4. VALGANCICLOVIR. [Concomitant]
     Active Substance: VALGANCICLOVIR
     Indication: CYTOMEGALOVIRUS INFECTION
  5. CYCLOPHOSPHAMIDE. [Suspect]
     Active Substance: CYCLOPHOSPHAMIDE
     Indication: CHRONIC LYMPHOCYTIC LEUKAEMIA STAGE 2
     Route: 065

REACTIONS (13)
  - Malignant neoplasm progression [Unknown]
  - Colorectal cancer metastatic [Unknown]
  - Cough [Unknown]
  - Varicose vein [Unknown]
  - Escherichia infection [Unknown]
  - Colon cancer [Unknown]
  - Chronic lymphocytic leukaemia stage 2 [Unknown]
  - Cytomegalovirus infection [Unknown]
  - Haematochezia [Unknown]
  - Abdominal pain [Unknown]
  - Pyrexia [Unknown]
  - Febrile neutropenia [Unknown]
  - Rhinitis [Unknown]

NARRATIVE: CASE EVENT DATE: 201409
